FAERS Safety Report 8031386-7 (Version None)
Quarter: 2011Q4

REPORT INFORMATION
  Report Type: 
  Country: None (occurrence: None)
  Receive Date: 20111201
  Receipt Date: 20101012
  Transmission Date: 20120403
  Serious: Yes (Hospitalization, Other)
  Sender: FDA-Public Use
  Company Number: 244356USA

PATIENT
  Age: 66 Year
  Sex: Female
  Weight: 120.2032 kg

DRUGS (15)
  1. POTASSIUM CHLORIDE [Concomitant]
  2. WARFARIN SODIUM [Concomitant]
  3. INSULIN GLARGINE [Concomitant]
  4. INSULIN [Concomitant]
  5. DIAMOX SRC [Suspect]
     Indication: PAPILLOEDEMA
     Dosage: 1500 MG (500 MG, 3 IN 1 D)
     Dates: start: 20100501
  6. VERAPAMIL [Concomitant]
  7. ZOLPIDEM [Concomitant]
  8. TRAZODONE HCL [Concomitant]
  9. ACETYLSALICYLIC ACID SRT [Concomitant]
  10. ALLOPURINOL [Concomitant]
  11. LISINOPRIL [Concomitant]
  12. VENLAFAXINE [Concomitant]
  13. FUROSEMIDE [Concomitant]
  14. HYDROCODONE BITARTRATE [Concomitant]
  15. GLIPIZIDE [Concomitant]

REACTIONS (10)
  - BLOOD GLUCOSE INCREASED [None]
  - SOMNOLENCE [None]
  - HEADACHE [None]
  - ABDOMINAL PAIN [None]
  - NAUSEA [None]
  - BLOOD PRESSURE INCREASED [None]
  - DIARRHOEA [None]
  - CONFUSIONAL STATE [None]
  - DRUG HYPERSENSITIVITY [None]
  - DEHYDRATION [None]
